FAERS Safety Report 17568589 (Version 2)
Quarter: 2020Q1

REPORT INFORMATION
  Report Type: Spontaneous
  Country: US (occurrence: US)
  Receive Date: 20200320
  Receipt Date: 20200326
  Transmission Date: 20200409
  Serious: No
  Sender: FDA-Public Use
  Company Number: US-009507513-2003USA006481

PATIENT
  Sex: Female

DRUGS (1)
  1. NUVARING [Suspect]
     Active Substance: ETHINYL ESTRADIOL\ETONOGESTREL
     Dosage: 1 RING
     Route: 067
     Dates: end: 202003

REACTIONS (4)
  - Withdrawal bleed [Unknown]
  - Inappropriate schedule of product administration [Unknown]
  - Accidental underdose [Unknown]
  - Device expulsion [Unknown]

NARRATIVE: CASE EVENT DATE: 202003
